FAERS Safety Report 7220670-2 (Version None)
Quarter: 2011Q1

REPORT INFORMATION
  Report Type: 
  Country: None (occurrence: None)
  Receive Date: 20110111
  Receipt Date: 20110103
  Transmission Date: 20110831
  Serious: Yes (Other)
  Sender: FDA-Public Use
  Company Number: US-ELI_LILLY_AND_COMPANY-US201101000672

PATIENT
  Sex: Female

DRUGS (3)
  1. NOVOLIN N [Concomitant]
  2. HUMULIN N [Suspect]
     Dosage: UNK, AS NEEDED
  3. HUMULIN N [Suspect]
     Indication: DIABETES MELLITUS
     Dosage: 22 U, EACH MORNING

REACTIONS (3)
  - BLOOD GLUCOSE FLUCTUATION [None]
  - COMA [None]
  - ARTHRITIS [None]
